FAERS Safety Report 9417767 (Version 2)
Quarter: 2013Q3

REPORT INFORMATION
  Report Type: Spontaneous
  Country: US (occurrence: US)
  Receive Date: 20130724
  Receipt Date: 20130819
  Transmission Date: 20140515
  Serious: Yes (Death)
  Sender: FDA-Public Use
  Company Number: US-GLAXOSMITHKLINE-A1034435A

PATIENT
  Age: 43 Year
  Sex: Male

DRUGS (5)
  1. LAMICTAL [Suspect]
     Indication: BIPOLAR DISORDER
     Dosage: 100MG UNKNOWN
     Dates: start: 20121212
  2. ABILIFY [Concomitant]
  3. CLONAZEPAM [Concomitant]
  4. SERTRALINE [Concomitant]
  5. VISTARIL [Concomitant]

REACTIONS (1)
  - Death [Fatal]
